FAERS Safety Report 4446581-3 (Version None)
Quarter: 2004Q3

REPORT INFORMATION
  Report Type: 
  Country: None (occurrence: None)
  Receive Date: 20040908
  Receipt Date: 20040827
  Transmission Date: 20050211
  Serious: Yes (Other)
  Sender: FDA-Public Use
  Company Number: USA-2004-0016632

PATIENT
  Sex: Male

DRUGS (2)
  1. OXYCONTIN [Suspect]
     Dosage: MG,
  2. LITHIUM CARBONATE [Concomitant]

REACTIONS (2)
  - ACCIDENTAL OVERDOSE [None]
  - RHABDOMYOLYSIS [None]
